FAERS Safety Report 8418486-4 (Version None)
Quarter: 2012Q2

REPORT INFORMATION
  Report Type: 
  Country: None (occurrence: None)
  Receive Date: 20120531
  Receipt Date: 20120516
  Transmission Date: 20120825
  Serious: Yes (Other)
  Sender: FDA-Public Use
  Company Number: 2012-1929

PATIENT
  Sex: Female

DRUGS (2)
  1. BOTULINUM TOXIN TYPE A [Suspect]
  2. BOTOX [Suspect]
     Indication: MUSCLE SPASTICITY
     Dosage: CYCLICAL, INTRAMUSCULAR
     Route: 030

REACTIONS (1)
  - HENOCH-SCHONLEIN PURPURA [None]
